FAERS Safety Report 6694887-X (Version None)
Quarter: 2010Q2

REPORT INFORMATION
  Report Type: 
  Country: None (occurrence: None)
  Receive Date: 20100420
  Receipt Date: 20100406
  Transmission Date: 20101027
  Serious: Yes (Hospitalization)
  Sender: FDA-Public Use
  Company Number: 1000013206

PATIENT
  Age: 74 Year
  Sex: Male
  Weight: 66.9 kg

DRUGS (8)
  1. ESCITALOPRAM [Suspect]
     Dosage: 20 MG (20 MG, 1 IN 1 D), ORAL
     Route: 048
     Dates: start: 20090710, end: 20090803
  2. ERGENYL [Suspect]
     Dosage: 500 MG (500 MG, 1 IN 1 D), ORAL
     Route: 048
     Dates: start: 20090723, end: 20090729
  3. ERGENYL [Suspect]
     Dosage: 100 MG (100 MG, 1 IN 1 D), ORAL
     Route: 048
     Dates: start: 20090803
  4. RISPERDAL [Suspect]
     Dosage: 1 MG (1 MG, 1 IN 1 D), ORAL
     Route: 048
     Dates: start: 20090723, end: 20090723
  5. RISPERDAL [Suspect]
     Dosage: 1 MG (1 MG, 1 IN 1 D)
     Dates: start: 20090810
  6. DOMINAL [Suspect]
     Dosage: 80 MG (80 MG, 1 IN 1 D), ORAL
     Route: 048
     Dates: start: 20090729, end: 20090730
  7. DOMINAL [Suspect]
     Dosage: 120 MG (120 MG, 1 IN 1 D), ORAL
     Route: 048
     Dates: start: 20090731
  8. MAGNETRANS [Concomitant]

REACTIONS (2)
  - DRUG INTERACTION [None]
  - HYPONATRAEMIA [None]
